FAERS Safety Report 18512581 (Version 1)
Quarter: 2020Q4

REPORT INFORMATION
  Report Type: Report from Study
  Country: US (occurrence: US)
  Receive Date: 20201117
  Receipt Date: 20201117
  Transmission Date: 20210114
  Serious: Yes (Hospitalization, Other)
  Sender: FDA-Public Use
  Company Number: US-BRISTOL-MYERS SQUIBB COMPANY-BMS-2020-095692

PATIENT
  Age: 45 Year
  Sex: Female
  Weight: 43.7 kg

DRUGS (3)
  1. IPILIMUMAB [Suspect]
     Active Substance: IPILIMUMAB
     Indication: THYROID NEOPLASM
     Dosage: 49 MILLIGRAM
     Route: 042
     Dates: start: 20200212, end: 20200506
  2. NIVOLUMAB [Suspect]
     Active Substance: NIVOLUMAB
     Indication: THYROID NEOPLASM
     Dosage: 240 MILLIGRAM
     Route: 042
     Dates: start: 20200212, end: 20200506
  3. CABOZANTINIB [Suspect]
     Active Substance: CABOZANTINIB
     Indication: THYROID NEOPLASM
     Dosage: 40 MILLIGRAM, QD
     Route: 048
     Dates: start: 20200212, end: 20200519

REACTIONS (1)
  - Hepatitis viral [Not Recovered/Not Resolved]

NARRATIVE: CASE EVENT DATE: 20200520
